FAERS Safety Report 5858563-5 (Version None)
Quarter: 2008Q3

REPORT INFORMATION
  Report Type: 
  Country: None (occurrence: None)
  Receive Date: 20080826
  Receipt Date: 20080822
  Transmission Date: 20090109
  Serious: Yes (Death)
  Sender: FDA-Public Use
  Company Number: GB-PFIZER INC-2008062921

PATIENT
  Age: 60 Year
  Sex: Male
  Weight: 83.9 kg

DRUGS (7)
  1. ATORVASTATIN [Suspect]
     Indication: HYPERLIPIDAEMIA
     Route: 048
     Dates: start: 20010607, end: 20070217
  2. TRANDOLAPRIL [Suspect]
     Indication: HYPERTENSION
     Route: 048
     Dates: start: 20000908, end: 20070217
  3. ACETYLSALICYLIC ACID SRT [Concomitant]
     Route: 048
     Dates: start: 20020821, end: 20070217
  4. BENDROFLUMETHIAZIDE [Concomitant]
     Route: 048
     Dates: start: 20000511, end: 20070217
  5. DOXAZOSIN MESYLATE [Concomitant]
     Route: 048
     Dates: start: 20040922, end: 20070217
  6. FENOFIBRATE [Concomitant]
     Route: 048
     Dates: start: 20000915, end: 20070217
  7. ZOPICLONE [Concomitant]
     Route: 048
     Dates: start: 20001106, end: 20070217

REACTIONS (2)
  - MULTI-ORGAN FAILURE [None]
  - PANCREATITIS ACUTE [None]
